FAERS Safety Report 9826118 (Version 2)
Quarter: 2014Q1

REPORT INFORMATION
  Report Type: Spontaneous
  Country: IT (occurrence: None)
  Receive Date: 20140115
  Receipt Date: 20140225
  Transmission Date: 20141002
  Serious: Yes (Hospitalization)
  Sender: FDA-Public Use
  Company Number: 2013AP010773

PATIENT
  Age: 84 Year
  Sex: Male

DRUGS (10)
  1. LEVOFLOXACIN [Suspect]
     Indication: PYREXIA
     Route: 048
     Dates: start: 20131125, end: 20131129
  2. STILNOX (ZOLPIDEM TARTRATE) [Concomitant]
  3. CLENIL /00212602/ (BECLOMETASONE DIPROPIONATE) [Concomitant]
  4. ATEM (IPRATROPIUM BROMIDE) [Concomitant]
  5. CEFTRIAXONE [Concomitant]
  6. FUROSEMIDE [Concomitant]
  7. LANSOPRAZOLE [Concomitant]
  8. CLOPIDOGREL [Concomitant]
  9. RAMIPRIL [Concomitant]
  10. ALPRAZOLAM [Concomitant]

REACTIONS (4)
  - Drug-induced liver injury [None]
  - Azotaemia [None]
  - Blood creatinine increased [None]
  - Drug-induced liver injury [None]
